FAERS Safety Report 10082139 (Version 1)
Quarter: 2014Q2

REPORT INFORMATION
  Report Type: Spontaneous
  Country: JP (occurrence: JP)
  Receive Date: 20140416
  Receipt Date: 20140416
  Transmission Date: 20141212
  Serious: Yes (Hospitalization, Other)
  Sender: FDA-Public Use
  Company Number: JP-JNJFOC-20140410128

PATIENT
  Age: 18 Year
  Sex: Female

DRUGS (3)
  1. REMICADE [Suspect]
     Indication: CROHN^S DISEASE
     Route: 042
  2. AZANIN [Suspect]
     Indication: CROHN^S DISEASE
     Route: 048
  3. MESALAZINE [Concomitant]
     Indication: CROHN^S DISEASE
     Route: 048

REACTIONS (4)
  - Epstein-Barr virus associated lymphoproliferative disorder [Not Recovered/Not Resolved]
  - Cytomegalovirus infection [Not Recovered/Not Resolved]
  - Herpes zoster [Not Recovered/Not Resolved]
  - Drug ineffective [Unknown]
